FAERS Safety Report 5343298-8 (Version None)
Quarter: 2007Q2

REPORT INFORMATION
  Report Type: 
  Country: None (occurrence: None)
  Receive Date: 20070502
  Receipt Date: 20061107
  Transmission Date: 20071010
  Serious: Yes (Life-Threatening)
  Sender: FDA-Public Use
  Company Number: PHEH2006US10838

PATIENT
  Age: 74 Year
  Sex: Female

DRUGS (6)
  1. LOTREL [Suspect]
     Indication: HYPERTENSION
     Dosage: 5MG AMLODIPINE/10MG ENAZEPRIL, QD, ORAL
     Route: 048
     Dates: start: 20060818
  2. ATENOLOL [Suspect]
     Indication: HYPERTENSION
     Dosage: 25 MG, QD, ORAL
     Route: 048
     Dates: start: 20060125, end: 20060821
  3. FOSAMAX [Concomitant]
  4. NASONEX [Concomitant]
  5. COSOPT [Concomitant]
  6. PRESER VISION [Concomitant]

REACTIONS (1)
  - HYPOTENSION [None]
